FAERS Safety Report 12990337 (Version 6)
Quarter: 2020Q4

REPORT INFORMATION
  Report Type: Spontaneous
  Country: US (occurrence: US)
  Receive Date: 20161201
  Receipt Date: 20201216
  Transmission Date: 20210113
  Serious: Yes (Other)
  Sender: FDA-Public Use
  Company Number: US-PFIZER INC-2016555925

PATIENT
  Age: 57 Year
  Sex: Female
  Weight: 73 kg

DRUGS (6)
  1. AROMASIN [Suspect]
     Active Substance: EXEMESTANE
     Indication: BREAST CANCER FEMALE
  2. FENTANYL. [Concomitant]
     Active Substance: FENTANYL
     Indication: FOOT FRACTURE
     Dosage: 12.5 MG, APPLIED EVERY 3 DAYS
  3. HERCEPTIN [Concomitant]
     Active Substance: TRASTUZUMAB
     Indication: BREAST CANCER
     Dosage: UNK, EVERY 3 MONTHS
     Route: 042
  4. AROMASIN [Suspect]
     Active Substance: EXEMESTANE
     Indication: BREAST CANCER STAGE IV
     Dosage: 25 MG, 1X/DAY WITH A MEAL
     Route: 048
     Dates: start: 2014
  5. BYSTOLIC [Concomitant]
     Active Substance: NEBIVOLOL HYDROCHLORIDE
     Indication: HYPERTENSION
     Dosage: UNK, 1X/DAY
  6. LISINOPRIL. [Concomitant]
     Active Substance: LISINOPRIL
     Indication: HYPERTENSION
     Dosage: 20 MG, 1X/DAY

REACTIONS (6)
  - Diarrhoea [Unknown]
  - Type 2 diabetes mellitus [Unknown]
  - Neoplasm recurrence [Unknown]
  - Abdominal pain upper [Unknown]
  - SARS-CoV-2 test positive [Unknown]
  - Illness [Unknown]
